FAERS Safety Report 9744040 (Version 1)
Quarter: 2013Q4

REPORT INFORMATION
  Report Type: Spontaneous
  Country: NL (occurrence: NL)
  Receive Date: 20131210
  Receipt Date: 20131210
  Transmission Date: 20140711
  Serious: Yes (Life-Threatening, Hospitalization, Other)
  Sender: FDA-Public Use
  Company Number: NL-PFIZER INC-2013350799

PATIENT
  Age: 84 Year
  Sex: Female
  Weight: 90 kg

DRUGS (12)
  1. PANTOZOL [Suspect]
     Indication: PROPHYLAXIS AGAINST GASTROINTESTINAL ULCER
     Dosage: 40 MG, 2X/DAY
     Route: 048
     Dates: start: 20130413
  2. METOCLOPRAMIDE [Concomitant]
     Dosage: 10 MG, UNK
  3. VIDISIC CARBOGEL [Concomitant]
     Dosage: 10 G, UNK
  4. FLIXOTIDE [Concomitant]
     Dosage: UNK
  5. LASIX [Concomitant]
     Dosage: 40 MG, UNK
  6. DIAZEPAM [Concomitant]
     Dosage: 5 MG, UNK
  7. SALBUTAMOL [Concomitant]
     Dosage: UNK
  8. ACETYLSALICYLZUUR [Concomitant]
     Dosage: 80 MG, UNK
  9. LANTUS [Concomitant]
     Dosage: UNK
  10. PARACETAMOL/CODEINEFOSFAAT [Concomitant]
     Dosage: 500/10 MG UNK
  11. HYDROXOCOBALAMINE [Concomitant]
     Dosage: 500 UG/ML, UNK
  12. MACROGOL/ZOUTE [Concomitant]
     Dosage: UNK
     Route: 048

REACTIONS (3)
  - Hypokalaemia [Recovered/Resolved with Sequelae]
  - Epilepsy [Recovered/Resolved with Sequelae]
  - Hypomagnesaemia [Recovered/Resolved with Sequelae]
